FAERS Safety Report 8833904 (Version 1)
Quarter: 2012Q4

REPORT INFORMATION
  Report Type: Spontaneous
  Country: US (occurrence: None)
  Receive Date: 20121010
  Receipt Date: 20121010
  Transmission Date: 20130627
  Serious: Yes (Other)
  Sender: FDA-Public Use
  Company Number: None

PATIENT
  Age: 18 Year
  Sex: Female
  Weight: 61.24 kg

DRUGS (2)
  1. MIRENA [Suspect]
     Indication: BIRTH CONTROL
     Dates: start: 20090301, end: 20091001
  2. MIRENA [Suspect]
     Dates: start: 20090301, end: 20091001

REACTIONS (4)
  - Pregnancy with contraceptive device [None]
  - Device dislocation [None]
  - Ectopic pregnancy [None]
  - Abortion spontaneous [None]
